FAERS Safety Report 20747019 (Version 1)
Quarter: 2022Q2

REPORT INFORMATION
  Report Type: Spontaneous
  Country: US (occurrence: US)
  Receive Date: 20220425
  Receipt Date: 20220425
  Transmission Date: 20220721
  Serious: No
  Sender: FDA-Public Use
  Company Number: US-PFIZER INC-202100917181

PATIENT
  Sex: Female

DRUGS (1)
  1. NEURONTIN [Suspect]
     Active Substance: GABAPENTIN
     Dosage: 100 MG
     Dates: start: 20210718

REACTIONS (8)
  - Dysgeusia [Unknown]
  - Breath odour [Unknown]
  - Insomnia [Unknown]
  - Pain [Unknown]
  - Speech disorder [Unknown]
  - Hypoaesthesia oral [Unknown]
  - Dry mouth [Unknown]
  - Arthralgia [Unknown]

NARRATIVE: CASE EVENT DATE: 20210719
